FAERS Safety Report 6463181-4 (Version None)
Quarter: 2009Q4

REPORT INFORMATION
  Report Type: 
  Country: None (occurrence: None)
  Receive Date: 20091124
  Receipt Date: 20091111
  Transmission Date: 20100525
  Serious: Yes (Other)
  Sender: FDA-Public Use
  Company Number: 2009S1008528

PATIENT
  Sex: Female

DRUGS (1)
  1. PHOSPHOSODA FLAVOR NOT SPECIFIED [Suspect]
     Indication: LAXATIVE SUPPORTIVE CARE
     Dosage: PO
     Route: 048
     Dates: start: 20060908, end: 20070101

REACTIONS (1)
  - RENAL IMPAIRMENT [None]
